FAERS Safety Report 7152588-8 (Version None)
Quarter: 2010Q4

REPORT INFORMATION
  Report Type: 
  Country: None (occurrence: None)
  Receive Date: 20101213
  Receipt Date: 20101202
  Transmission Date: 20110411
  Serious: Yes (Other)
  Sender: FDA-Public Use
  Company Number: JP-JNJFOC-20101202098

PATIENT
  Age: 50 Year
  Sex: Female

DRUGS (2)
  1. DOXIL [Suspect]
     Indication: OVARIAN CANCER RECURRENT
     Route: 042
  2. CARBOPLATIN [Concomitant]
     Indication: OVARIAN CANCER RECURRENT
     Route: 042

REACTIONS (1)
  - CEREBRAL INFARCTION [None]
